FAERS Safety Report 7752424-2 (Version None)
Quarter: 2011Q3

REPORT INFORMATION
  Report Type: 
  Country: None (occurrence: None)
  Receive Date: 20110915
  Receipt Date: 20110908
  Transmission Date: 20111222
  Serious: Yes (Other)
  Sender: FDA-Public Use
  Company Number: PHHY2010CA69404

PATIENT
  Sex: Female

DRUGS (2)
  1. ZOLEDRONOC ACID [Suspect]
     Indication: OSTEOPOROSIS
     Dosage: 5 MG, UNK
     Route: 042
     Dates: start: 20091019
  2. ANAESTHETICS, LOCAL [Concomitant]

REACTIONS (3)
  - WEIGHT DECREASED [None]
  - TOOTH LOSS [None]
  - EATING DISORDER [None]
